FAERS Safety Report 9233208 (Version 1)
Quarter: 2013Q2

REPORT INFORMATION
  Report Type: Spontaneous
  Country: DE (occurrence: DE)
  Receive Date: 20130416
  Receipt Date: 20130416
  Transmission Date: 20140414
  Serious: Yes (Other)
  Sender: FDA-Public Use
  Company Number: DE-BAYER-2013-039807

PATIENT
  Age: 17 Year
  Sex: Male
  Weight: 66 kg

DRUGS (2)
  1. KOGENATE BAYER [Suspect]
     Indication: LIP HAEMORRHAGE
     Dosage: 2000 IU, UNK
     Dates: start: 20130322, end: 20130322
  2. KOGENATE BAYER [Suspect]
     Indication: FACTOR VIII DEFICIENCY
     Dosage: UNK
     Dates: start: 20130304, end: 20130306

REACTIONS (6)
  - Shock [None]
  - Blood pressure decreased [Recovering/Resolving]
  - Flushing [Recovering/Resolving]
  - Chest discomfort [None]
  - Dyspnoea [None]
  - Feeling abnormal [None]
